FAERS Safety Report 4718023-1 (Version None)
Quarter: 2005Q3

REPORT INFORMATION
  Report Type: 
  Country: None (occurrence: None)
  Receive Date: 20050718
  Receipt Date: 20050217
  Transmission Date: 20060218
  Serious: No
  Sender: FDA-Public Use
  Company Number: 2005000421

PATIENT
  Age: 60 Year
  Sex: Male

DRUGS (4)
  1. TARCEVA [Suspect]
     Indication: PANCREATIC CARCINOMA
     Dosage: 150 MG, (QD), ORAL  3.5 WEEKS PRIOR TO EVENT
     Route: 048
  2. LORAZEPAM [Concomitant]
  3. SERTRALINE HYDROCHLORIDE [Concomitant]
  4. GEMCITABINE [Concomitant]

REACTIONS (2)
  - PULSE ABNORMAL [None]
  - PULSE PRESSURE DECREASED [None]
